FAERS Safety Report 9530393 (Version 2)
Quarter: 2013Q3

REPORT INFORMATION
  Report Type: Spontaneous
  Country: US (occurrence: US)
  Receive Date: 20130918
  Receipt Date: 20130918
  Transmission Date: 20140515
  Serious: Yes (Hospitalization, Other)
  Sender: FDA-Public Use
  Company Number: US-AMGEN-USASP2013001843

PATIENT
  Age: 64 Year
  Sex: Female

DRUGS (1)
  1. ENBREL [Suspect]
     Indication: RHEUMATOID ARTHRITIS
     Dosage: 50 MG, QWK
     Route: 065
     Dates: start: 20101102

REACTIONS (26)
  - Clostridium difficile infection [Recovered/Resolved]
  - Escherichia urinary tract infection [Recovered/Resolved]
  - Ulcer [Not Recovered/Not Resolved]
  - Pruritus [Not Recovered/Not Resolved]
  - Mass [Recovered/Resolved]
  - Tenderness [Recovered/Resolved]
  - Fall [Not Recovered/Not Resolved]
  - Arthralgia [Recovered/Resolved]
  - Abdominal pain upper [Recovered/Resolved]
  - Nodule [Not Recovered/Not Resolved]
  - Pain [Not Recovered/Not Resolved]
  - Osteoporosis [Recovered/Resolved]
  - Osteopenia [Not Recovered/Not Resolved]
  - Tooth infection [Not Recovered/Not Resolved]
  - Chromaturia [Recovered/Resolved]
  - Dry mouth [Not Recovered/Not Resolved]
  - Device failure [Not Recovered/Not Resolved]
  - Blister [Recovered/Resolved]
  - Foot deformity [Not Recovered/Not Resolved]
  - Dehydration [Recovered/Resolved]
  - Epistaxis [Recovered/Resolved]
  - Joint swelling [Recovered/Resolved]
  - Dyspepsia [Not Recovered/Not Resolved]
  - Infected skin ulcer [Recovered/Resolved]
  - Influenza [Recovered/Resolved]
  - Fungal infection [Not Recovered/Not Resolved]
